FAERS Safety Report 23188074 (Version 1)
Quarter: 2023Q4

REPORT INFORMATION
  Report Type: Spontaneous
  Country: TH (occurrence: TH)
  Receive Date: 20231115
  Receipt Date: 20231115
  Transmission Date: 20240109
  Serious: Yes (Other)
  Sender: FDA-Public Use
  Company Number: TH-009507513-2311THA003468

PATIENT
  Age: 69 Year
  Sex: Female

DRUGS (4)
  1. KEYTRUDA [Suspect]
     Active Substance: PEMBROLIZUMAB
     Indication: Gastric cancer
     Dosage: 200 MILLIGRAM, Q3W
     Route: 042
     Dates: start: 20221012
  2. TRASTUZUMAB [Concomitant]
     Active Substance: TRASTUZUMAB
     Indication: Gastric cancer
     Dosage: 6 MILLIGRAM/KILOGRAM, Q3W UNTIL PROGRESSION OF DISEASE
     Dates: start: 20221012
  3. CISPLATIN [Concomitant]
     Active Substance: CISPLATIN
     Indication: Gastric cancer
     Dosage: 80 MILLIGRAM/SQ. METER, Q3W X 6
     Dates: start: 20221012
  4. FLUOROURACIL [Concomitant]
     Active Substance: FLUOROURACIL
     Indication: Gastric cancer
     Dosage: 80 MILLIGRAM/SQ. METER, Q3W X 6
     Dates: start: 20221012

REACTIONS (2)
  - Gastric ulcer [Unknown]
  - Therapy partial responder [Unknown]
